FAERS Safety Report 7402566-6 (Version None)
Quarter: 2011Q2

REPORT INFORMATION
  Report Type: 
  Country: None (occurrence: None)
  Receive Date: 20110408
  Receipt Date: 20110315
  Transmission Date: 20111010
  Serious: No
  Sender: FDA-Public Use
  Company Number: US-B.I. PHARMACEUTICALS,INC./RIDGEFIELD-2011-BP-08160BP

PATIENT
  Age: 78 Year
  Sex: Female

DRUGS (11)
  1. PLAVIX [Concomitant]
     Indication: ANTICOAGULANT THERAPY
  2. CRESTOR [Concomitant]
     Indication: BLOOD CHOLESTEROL INCREASED
  3. DILTIAZEM [Concomitant]
     Indication: HYPERTENSION
  4. PLAVIX [Concomitant]
     Indication: ATRIAL FIBRILLATION
  5. BYSTOLIC [Concomitant]
     Indication: HYPERTENSION
  6. COMBIVENT [Concomitant]
     Indication: EMPHYSEMA
  7. SYNTHROID [Concomitant]
     Indication: THYROID DISORDER
  8. ASPIRIN [Concomitant]
  9. BENICAR [Concomitant]
     Indication: HYPERTENSION
  10. PRADAXA [Suspect]
     Indication: ATRIAL FIBRILLATION
     Dosage: 300 MG
     Route: 048
     Dates: start: 20110202, end: 20110311
  11. HYDROCHLOROTHIAZIDE [Concomitant]
     Indication: HYPERTENSION

REACTIONS (2)
  - BACTERIAL TEST [None]
  - HAEMATURIA [None]
